FAERS Safety Report 22918322 (Version 7)
Quarter: 2025Q1

REPORT INFORMATION
  Report Type: Other
  Country: US (occurrence: US)
  Receive Date: 20230907
  Receipt Date: 20250321
  Transmission Date: 20250408
  Serious: Yes (Other)
  Sender: TRAVERE THERAPEUTICS
  Company Number: US-TRAVERE-2023TVT00416

PATIENT
  Age: 49 Year
  Sex: Female
  Weight: 104.33 kg

DRUGS (16)
  1. FILSPARI [Suspect]
     Active Substance: SPARSENTAN
     Indication: Proteinuria
     Dosage: 200 MG
     Route: 048
     Dates: start: 20230617
  2. FILSPARI [Suspect]
     Active Substance: SPARSENTAN
     Indication: IgA nephropathy
     Route: 048
     Dates: start: 20230702
  3. FILSPARI [Suspect]
     Active Substance: SPARSENTAN
     Route: 048
     Dates: end: 202503
  4. ESOMEPRAZOLE MAGNESIUM [Concomitant]
     Active Substance: ESOMEPRAZOLE MAGNESIUM
  5. MELATONIN [Concomitant]
     Active Substance: MELATONIN
  6. TYLENOL ARTHRITIS PAIN [Concomitant]
     Active Substance: ACETAMINOPHEN
  7. TRAMADOL HCL [Concomitant]
     Active Substance: TRAMADOL HYDROCHLORIDE
  8. Pregabalin  HCl [Concomitant]
  9. SPIRONOLACTONE [Concomitant]
     Active Substance: SPIRONOLACTONE
  10. LOSARTAN POTASSIUM [Concomitant]
     Active Substance: LOSARTAN POTASSIUM
  11. CARVEDILOL [Concomitant]
     Active Substance: CARVEDILOL
  12. ALLOPURINOL [Concomitant]
     Active Substance: ALLOPURINOL
  13. ATORVASTATIN CALCIUM [Concomitant]
     Active Substance: ATORVASTATIN CALCIUM
  14. D3-5000 [Concomitant]
  15. CYCLOBENZAPRINE HYDROCHLORIDE [Concomitant]
     Active Substance: CYCLOBENZAPRINE HYDROCHLORIDE
  16. FISH OIL [Concomitant]
     Active Substance: FISH OIL

REACTIONS (9)
  - Hypertension [None]
  - Migraine [Recovered/Resolved]
  - Pain in extremity [None]
  - Peripheral swelling [None]
  - Migraine [Unknown]
  - Headache [None]
  - Product dose omission issue [Unknown]
  - Drug effect less than expected [Unknown]
  - Contraindicated product administered [Unknown]

NARRATIVE: CASE EVENT DATE: 20230820
